FAERS Safety Report 16305893 (Version 2)
Quarter: 2019Q2

REPORT INFORMATION
  Report Type: Spontaneous
  Country: JP (occurrence: JP)
  Receive Date: 20190513
  Receipt Date: 20190520
  Transmission Date: 20190711
  Serious: Yes (Hospitalization)
  Sender: FDA-Public Use
  Company Number: JP-CELGENEUS-JPN-20190504033

PATIENT
  Age: 85 Year
  Sex: Male
  Weight: 46.9 kg

DRUGS (14)
  1. FLUCONAZOLE. [Concomitant]
     Active Substance: FLUCONAZOLE
     Indication: PROPHYLAXIS
     Dosage: 100 MILLIGRAM
     Route: 065
     Dates: start: 20190408
  2. BFLUID [Concomitant]
     Active Substance: AMINO ACIDS\DEXTROSE\ELECTROLYTES NOS\VITAMINS
     Indication: ADVERSE EVENT
     Route: 065
     Dates: start: 20190413
  3. AZULENE SULFONATE SODIUM [Concomitant]
     Active Substance: SODIUM GUALENATE
     Indication: PROPHYLAXIS
     Dosage: 4 PERCENT
     Route: 065
  4. CEFOZOPRAN HYDROCHLORIDE [Concomitant]
     Active Substance: CEFOZOPRAN HYDROCHLORIDE
     Indication: ADVERSE EVENT
     Route: 065
     Dates: start: 20190502, end: 20190506
  5. PANCRELIPASE. [Concomitant]
     Active Substance: PANCRELIPASE
     Indication: DISEASE COMPLICATION
     Dosage: 900 MILLIGRAM
     Route: 065
  6. PACKED RED BLOOD CELLS [Concomitant]
     Active Substance: HUMAN RED BLOOD CELL
     Indication: TRANSFUSION
     Dosage: 2 IU (INTERNATIONAL UNIT)
     Route: 065
     Dates: start: 20190502
  7. FIRSTCIN [Concomitant]
     Active Substance: CEFOZOPRAN HYDROCHLORIDE
     Indication: PRODUCT USED FOR UNKNOWN INDICATION
     Dosage: 4000 MILLIGRAM
     Route: 065
     Dates: start: 20190502
  8. CALONAL [Concomitant]
     Active Substance: ACETAMINOPHEN
     Indication: PYREXIA
     Route: 065
     Dates: start: 20190502
  9. AZACITIDINE. [Suspect]
     Active Substance: AZACITIDINE
     Indication: ACUTE MYELOID LEUKAEMIA
     Dosage: 75 MILLIGRAM/SQ. METER
     Route: 042
     Dates: start: 20190403, end: 20190409
  10. AZACITIDINE. [Suspect]
     Active Substance: AZACITIDINE
     Dosage: 75 MILLIGRAM/SQ. METER
     Route: 042
     Dates: start: 20190502, end: 20190502
  11. SIMVASTATIN. [Concomitant]
     Active Substance: SIMVASTATIN
     Indication: DISEASE COMPLICATION
     Dosage: 5 MILLIGRAM
     Route: 065
  12. ESOMEPRAZOLE MAGNESIUM HYDRATE [Concomitant]
     Active Substance: ESOMEPRAZOLE MAGNESIUM
     Indication: DISEASE COMPLICATION
     Dosage: 10 MILLIGRAM
     Route: 065
  13. CLOSTRIDIUM BUTYRICUM [Concomitant]
     Active Substance: CLOSTRIDIUM BUTYRICUM SPORES STRAIN M-55
     Indication: ADVERSE EVENT
     Dosage: 6 DOSAGE FORMS
     Route: 065
     Dates: start: 20190418
  14. ACETAMINOPHEN. [Concomitant]
     Active Substance: ACETAMINOPHEN
     Indication: ADVERSE EVENT
     Route: 065
     Dates: start: 20190503, end: 20190509

REACTIONS (1)
  - Pneumonitis [Not Recovered/Not Resolved]

NARRATIVE: CASE EVENT DATE: 20190503
